FAERS Safety Report 24769931 (Version 1)
Quarter: 2024Q4

REPORT INFORMATION
  Report Type: Spontaneous
  Country: US (occurrence: US)
  Receive Date: 20241224
  Receipt Date: 20241224
  Transmission Date: 20250114
  Serious: Yes (Hospitalization, Disabling)
  Sender: HIKMA
  Company Number: US-HIKMA PHARMACEUTICALS USA INC.-US-H14001-24-11888

PATIENT
  Age: 32 Year
  Sex: Male
  Weight: 83.8 kg

DRUGS (21)
  1. BENZTROPINE [Suspect]
     Active Substance: BENZTROPINE
     Indication: Schizoaffective disorder bipolar type
     Dosage: 1 MILLIGRAM, Q12H
     Route: 065
  2. BENZTROPINE [Suspect]
     Active Substance: BENZTROPINE
     Indication: Autism spectrum disorder
  3. BENZTROPINE [Suspect]
     Active Substance: BENZTROPINE
     Indication: Attention deficit hyperactivity disorder
  4. DIVALPROEX SODIUM [Suspect]
     Active Substance: DIVALPROEX SODIUM
     Indication: Schizoaffective disorder bipolar type
     Dosage: 1250MG, QD NIGHTLY
     Route: 065
  5. DIVALPROEX SODIUM [Suspect]
     Active Substance: DIVALPROEX SODIUM
     Indication: Autism spectrum disorder
  6. DIVALPROEX SODIUM [Suspect]
     Active Substance: DIVALPROEX SODIUM
     Indication: Attention deficit hyperactivity disorder
  7. ESCITALOPRAM [Suspect]
     Active Substance: ESCITALOPRAM OXALATE
     Indication: Schizoaffective disorder bipolar type
     Dosage: 10 MILLIGRAM, QD
     Route: 065
  8. ESCITALOPRAM [Suspect]
     Active Substance: ESCITALOPRAM OXALATE
     Indication: Autism spectrum disorder
  9. ESCITALOPRAM [Suspect]
     Active Substance: ESCITALOPRAM OXALATE
     Indication: Attention deficit hyperactivity disorder
  10. PERPHENAZINE [Suspect]
     Active Substance: PERPHENAZINE
     Indication: Schizoaffective disorder bipolar type
     Dosage: 36 MILLIGRAM, QD, (16 MG DAILY AND 20 MG NIGHTLY)
     Route: 065
  11. PERPHENAZINE [Suspect]
     Active Substance: PERPHENAZINE
     Indication: Autism spectrum disorder
  12. PERPHENAZINE [Suspect]
     Active Substance: PERPHENAZINE
     Indication: Attention deficit hyperactivity disorder
  13. QUETIAPINE [Suspect]
     Active Substance: QUETIAPINE
     Indication: Schizoaffective disorder bipolar type
     Dosage: 100 MILLIGRAM, QD, NIGHTLY
     Route: 065
  14. QUETIAPINE [Suspect]
     Active Substance: QUETIAPINE
     Indication: Autism spectrum disorder
  15. QUETIAPINE [Suspect]
     Active Substance: QUETIAPINE
     Indication: Attention deficit hyperactivity disorder
  16. DIVALPROEX SODIUM [Suspect]
     Active Substance: DIVALPROEX SODIUM
     Indication: Schizoaffective disorder bipolar type
     Dosage: 1250 MILLIGRAM, QD, NIGHTLY
     Route: 065
  17. DIVALPROEX SODIUM [Suspect]
     Active Substance: DIVALPROEX SODIUM
     Indication: Autism spectrum disorder
  18. DIVALPROEX SODIUM [Suspect]
     Active Substance: DIVALPROEX SODIUM
     Indication: Attention deficit hyperactivity disorder
  19. ZIPRASIDONE [Suspect]
     Active Substance: ZIPRASIDONE
     Indication: Schizoaffective disorder bipolar type
     Dosage: 40 MILLIGRAM, Q12H
     Route: 065
  20. ZIPRASIDONE [Suspect]
     Active Substance: ZIPRASIDONE
     Indication: Autism spectrum disorder
  21. ZIPRASIDONE [Suspect]
     Active Substance: ZIPRASIDONE
     Indication: Attention deficit hyperactivity disorder

REACTIONS (2)
  - Extrapyramidal disorder [Recovered/Resolved]
  - Fall [Unknown]
